FAERS Safety Report 14156640 (Version 2)
Quarter: 2017Q4

REPORT INFORMATION
  Report Type: Report from Study
  Country: SK (occurrence: SK)
  Receive Date: 20171103
  Receipt Date: 20171122
  Transmission Date: 20180321
  Serious: Yes (Other)
  Sender: FDA-Public Use
  Company Number: SK-BEH-2017084852

PATIENT
  Age: 23 Year
  Sex: Male

DRUGS (1)
  1. FACTOR VIII RECOMBINANT (NON-COMPANY) [Suspect]
     Active Substance: ANTIHEMOPHILIC FACTOR, HUMAN RECOMBINANT
     Indication: HAEMOSTASIS
     Route: 065

REACTIONS (1)
  - Anti factor VIII antibody positive [Unknown]
